FAERS Safety Report 5583157-9 (Version None)
Quarter: 2008Q1

REPORT INFORMATION
  Report Type: 
  Country: None (occurrence: None)
  Receive Date: 20080103
  Receipt Date: 20080103
  Transmission Date: 20080703
  Serious: No
  Sender: FDA-Public Use
  Company Number: None

PATIENT
  Age: 54 Year
  Sex: Female
  Weight: 58.0604 kg

DRUGS (1)
  1. CHANTIX [Suspect]
     Indication: SMOKING CESSATION THERAPY
     Dosage: .5MG WEEK 1, 1MG WEEK ? DAILY 2 X PO -DOSE DECREASED 12/20-
     Route: 048
     Dates: start: 20071209, end: 20071223

REACTIONS (24)
  - ABDOMINAL DISTENSION [None]
  - ABNORMAL FAECES [None]
  - ADVERSE DRUG REACTION [None]
  - ANOREXIA [None]
  - ARTHRALGIA [None]
  - BREAST OEDEMA [None]
  - BREAST TENDERNESS [None]
  - CONSTIPATION [None]
  - DYSGEUSIA [None]
  - FATIGUE [None]
  - FEELING ABNORMAL [None]
  - FLATULENCE [None]
  - GASTROINTESTINAL DISORDER [None]
  - HEADACHE [None]
  - HOT FLUSH [None]
  - INFLUENZA LIKE ILLNESS [None]
  - INSOMNIA [None]
  - MALAISE [None]
  - PAIN [None]
  - PAROSMIA [None]
  - PHARYNGOLARYNGEAL PAIN [None]
  - POLLAKIURIA [None]
  - THINKING ABNORMAL [None]
  - VOMITING [None]
